FAERS Safety Report 9097760 (Version 1)
Quarter: 2013Q1

REPORT INFORMATION
  Report Type: Spontaneous
  Country: US (occurrence: US)
  Receive Date: 20130212
  Receipt Date: 20130212
  Transmission Date: 20140127
  Serious: No
  Sender: FDA-Public Use
  Company Number: US-BAYER-2013-009355

PATIENT
  Age: 85 Year
  Sex: Female
  Weight: 74.83 kg

DRUGS (3)
  1. ALEVE CAPLET/TABLET,MIDOL EXTENDED RELIEF CAPLET [Suspect]
     Indication: HEADACHE
     Dosage: UNK UNK, PRN
     Route: 048
     Dates: start: 2011
  2. PROTONIX [Concomitant]
  3. LORAZEPAM [Concomitant]

REACTIONS (2)
  - Drug ineffective [None]
  - Off label use [None]
